FAERS Safety Report 10753824 (Version 2)
Quarter: 2015Q1

REPORT INFORMATION
  Report Type: Report from Study
  Country: AU (occurrence: AU)
  Receive Date: 20150202
  Receipt Date: 20150205
  Transmission Date: 20150721
  Serious: Yes (Other)
  Sender: FDA-Public Use
  Company Number: AU-ROCHE-1525979

PATIENT

DRUGS (3)
  1. ALTEPLASE [Suspect]
     Active Substance: ALTEPLASE
     Indication: PLEURAL INFECTION
     Route: 034
  2. UNFRACTIONATED HEPARIN [Suspect]
     Active Substance: HEPARIN SODIUM
     Indication: PULMONARY EMBOLISM
     Route: 065
  3. DORNASE ALFA [Suspect]
     Active Substance: DORNASE ALFA
     Indication: PLEURAL INFECTION
     Route: 034

REACTIONS (2)
  - Haemothorax [Unknown]
  - Product use issue [Unknown]
